FAERS Safety Report 9300852 (Version 1)
Quarter: 2013Q2

REPORT INFORMATION
  Report Type: Spontaneous
  Country: IT (occurrence: IT)
  Receive Date: 20130521
  Receipt Date: 20130521
  Transmission Date: 20140414
  Serious: Yes (Other)
  Sender: FDA-Public Use
  Company Number: PHHY2013IT049201

PATIENT
  Sex: Female

DRUGS (6)
  1. EPIRUBICIN [Suspect]
     Indication: INVASIVE DUCTAL BREAST CARCINOMA
     Dosage: 105 MG, CYCLIC
     Route: 042
     Dates: start: 20130121, end: 20130510
  2. ENDOXAN [Suspect]
     Indication: INVASIVE DUCTAL BREAST CARCINOMA
     Dosage: 700 MG, CYCLIC
     Route: 042
     Dates: start: 20130121, end: 20130510
  3. FLUORO-URACIL [Suspect]
     Indication: INVASIVE DUCTAL BREAST CARCINOMA
     Dosage: 700 MG, CYCLIC
     Route: 042
     Dates: start: 20130121, end: 20130510
  4. EUTIROX [Concomitant]
     Indication: HYPOTHYROIDISM
  5. ALIFLUS [Concomitant]
     Indication: ASTHMA
  6. SIVASTIN [Concomitant]
     Indication: HYPERCHOLESTEROLAEMIA

REACTIONS (3)
  - Constipation [Recovered/Resolved]
  - Neutropenia [Recovered/Resolved]
  - Asthenia [Recovered/Resolved]
